FAERS Safety Report 24691343 (Version 1)
Quarter: 2024Q4

REPORT INFORMATION
  Report Type: Spontaneous
  Country: IT (occurrence: IT)
  Receive Date: 20241203
  Receipt Date: 20241203
  Transmission Date: 20250115
  Serious: Yes (Other)
  Sender: GRIFOLS
  Company Number: None

PATIENT
  Age: 66 Year
  Sex: Female

DRUGS (5)
  1. FLEBOGAMMA DIF [Suspect]
     Active Substance: HUMAN IMMUNOGLOBULIN G
     Indication: Product used for unknown indication
     Dosage: 10 GRAM, QD
     Route: 042
     Dates: start: 20241111, end: 20241111
  2. BETAMETHASONE SODIUM PHOSPHATE [Concomitant]
     Active Substance: BETAMETHASONE SODIUM PHOSPHATE
     Dosage: 8 MILLIGRAM, UNKNOWN
     Route: 042
     Dates: start: 20241111
  3. PANTOPRAZOLE SODIUM [Concomitant]
     Active Substance: PANTOPRAZOLE SODIUM
     Indication: Premedication
     Dosage: 40 MILLIGRAM, UNKNOWN
     Route: 042
     Dates: start: 20241111
  4. TACHIPIRINA [Concomitant]
     Active Substance: ACETAMINOPHEN
     Indication: Premedication
     Dosage: 1 GRAM, UNKNOWN
     Route: 042
     Dates: start: 20241111
  5. TRIMETON [Concomitant]
     Active Substance: CHLORPHENIRAMINE MALEATE
     Indication: Premedication
     Dosage: 1 FIALA
     Route: 042
     Dates: start: 20241111

REACTIONS (4)
  - Infusion related reaction [Unknown]
  - Chest pain [Unknown]
  - Pyrexia [Unknown]
  - Vision blurred [Unknown]

NARRATIVE: CASE EVENT DATE: 20241111
